FAERS Safety Report 25720879 (Version 1)
Quarter: 2025Q3

REPORT INFORMATION
  Report Type: Spontaneous
  Country: CH (occurrence: CH)
  Receive Date: 20250825
  Receipt Date: 20250825
  Transmission Date: 20251021
  Serious: Yes (Other)
  Sender: LEGACY PHARMACEUTICAL PACKAGING
  Company Number: CH-LEGACY PHARMA INC. SEZC-LGP202508-000239

PATIENT
  Age: 45 Year
  Sex: Male

DRUGS (11)
  1. AZATHIOPRINE [Suspect]
     Active Substance: AZATHIOPRINE
     Indication: Crohn^s disease
     Route: 065
  2. AZATHIOPRINE [Suspect]
     Active Substance: AZATHIOPRINE
     Indication: Axial spondyloarthritis
  3. GOLIMUMAB [Suspect]
     Active Substance: GOLIMUMAB
     Indication: Crohn^s disease
  4. GOLIMUMAB [Suspect]
     Active Substance: GOLIMUMAB
     Indication: Axial spondyloarthritis
  5. BUDESONIDE [Concomitant]
     Active Substance: BUDESONIDE
     Indication: Crohn^s disease
  6. BUDESONIDE [Concomitant]
     Active Substance: BUDESONIDE
     Indication: Axial spondyloarthritis
  7. CELECOXIB [Concomitant]
     Active Substance: CELECOXIB
     Indication: Sacroiliitis
  8. ETANERCEPT [Concomitant]
     Active Substance: ETANERCEPT
     Indication: Axial spondyloarthritis
  9. INFLIXIMAB [Concomitant]
     Active Substance: INFLIXIMAB
     Indication: Axial spondyloarthritis
  10. ADALIMUMAB [Concomitant]
     Active Substance: ADALIMUMAB
     Indication: Axial spondyloarthritis
  11. TOCILIZUMAB [Concomitant]
     Active Substance: TOCILIZUMAB
     Indication: Axial spondyloarthritis

REACTIONS (4)
  - Axial spondyloarthritis [Recovered/Resolved]
  - Condition aggravated [Unknown]
  - Drug interaction [Unknown]
  - Product use in unapproved indication [Unknown]
